FAERS Safety Report 12319765 (Version 1)
Quarter: 2016Q2

REPORT INFORMATION
  Report Type: Spontaneous
  Country: US (occurrence: US)
  Receive Date: 20160429
  Receipt Date: 20160429
  Transmission Date: 20160815
  Serious: No
  Sender: FDA-Public Use
  Company Number: US-ROCHE-1607093

PATIENT
  Sex: Male
  Weight: 116.68 kg

DRUGS (1)
  1. ESBRIET [Suspect]
     Active Substance: PIRFENIDONE
     Indication: IDIOPATHIC PULMONARY FIBROSIS
     Dosage: 3 CAPSULES THRICE DAILY
     Route: 048
     Dates: start: 20150713

REACTIONS (8)
  - Dyspepsia [Unknown]
  - Somnolence [Unknown]
  - Throat irritation [Unknown]
  - Throat tightness [Unknown]
  - Throat tightness [Recovering/Resolving]
  - Nausea [Unknown]
  - Lung disorder [Unknown]
  - Cough [Recovering/Resolving]
